FAERS Safety Report 11750509 (Version 10)
Quarter: 2020Q2

REPORT INFORMATION
  Report Type: Spontaneous
  Country: US (occurrence: US)
  Receive Date: 20151118
  Receipt Date: 20200603
  Transmission Date: 20200713
  Serious: Yes (Other)
  Sender: FDA-Public Use
  Company Number: US-PFIZER INC-2015346166

PATIENT
  Age: 70 Year
  Sex: Female
  Weight: 56 kg

DRUGS (9)
  1. SYNTHROID [Concomitant]
     Active Substance: LEVOTHYROXINE SODIUM
     Dosage: 50 UG, 2X/DAY
     Dates: start: 2007
  2. ACTIQ [Concomitant]
     Active Substance: FENTANYL CITRATE
     Dosage: 100 ?G, 1X/DAY (H.S)
  3. ACTIQ [Concomitant]
     Active Substance: FENTANYL CITRATE
     Dosage: 100 ?G, AS NEEDED (TWO AT 8 HOURS PRN )
  4. VALIUM [Concomitant]
     Active Substance: DIAZEPAM
     Dosage: 50 MG, 1X/DAY (H.S.)
     Dates: start: 2000
  5. ACTIQ [Concomitant]
     Active Substance: FENTANYL CITRATE
     Dosage: 200 ?G, UNK
     Dates: start: 2012
  6. BACLOFEN. [Concomitant]
     Active Substance: BACLOFEN
     Dosage: 20 MG, 2X/DAY
     Dates: start: 2012
  7. ZOFRAN [Concomitant]
     Active Substance: ONDANSETRON HYDROCHLORIDE
     Dosage: 8 MG, (ODT)
     Dates: start: 2016
  8. NORPACE CR [Suspect]
     Active Substance: DISOPYRAMIDE PHOSPHATE
     Indication: ARRHYTHMIA
     Dosage: 100 MG, 2X/DAY
     Dates: start: 1970
  9. NORPACE CR [Suspect]
     Active Substance: DISOPYRAMIDE PHOSPHATE
     Indication: SUPRAVENTRICULAR TACHYCARDIA
     Dosage: 100 MG, 3X/DAY [100 MG, EVERY 8 HOURS, 24X7 EVERYDAY ALL DAY LONG, EVERY 8 HOURS]

REACTIONS (9)
  - Road traffic accident [Unknown]
  - Gastrointestinal motility disorder [Unknown]
  - Syringomyelia [Unknown]
  - Pain [Unknown]
  - Neuropathy peripheral [Unknown]
  - Bone cyst [Unknown]
  - Product dispensing error [Unknown]
  - Pancreatitis chronic [Unknown]
  - Urinary tract infection [Recovered/Resolved]
